FAERS Safety Report 17730853 (Version 1)
Quarter: 2020Q2

REPORT INFORMATION
  Report Type: Spontaneous
  Country: FR (occurrence: FR)
  Receive Date: 20200430
  Receipt Date: 20200430
  Transmission Date: 20200714
  Serious: Yes (Hospitalization)
  Sender: FDA-Public Use
  Company Number: FR-MYLANLABS-2020M1041955

PATIENT
  Age: 50 Year
  Sex: Female

DRUGS (1)
  1. LEPONEX [Suspect]
     Active Substance: CLOZAPINE
     Indication: PRODUCT USED FOR UNKNOWN INDICATION
     Dosage: 500 MILLIGRAM, QD
     Route: 048
     Dates: start: 20200205, end: 20200205

REACTIONS (3)
  - Lethargy [Recovered/Resolved]
  - Electrocardiogram QT prolonged [Recovered/Resolved]
  - Product prescribing error [Recovered/Resolved]

NARRATIVE: CASE EVENT DATE: 20200205
